FAERS Safety Report 5675563-9 (Version None)
Quarter: 2008Q1

REPORT INFORMATION
  Report Type: 
  Country: None (occurrence: None)
  Receive Date: 20080321
  Receipt Date: 20080311
  Transmission Date: 20080703
  Serious: Yes (Hospitalization)
  Sender: FDA-Public Use
  Company Number: JP-JNJFOC-20080303639

PATIENT
  Age: 3 Year

DRUGS (2)
  1. LOPEMIN [Suspect]
     Indication: HAEMATOCHEZIA
     Route: 048
  2. LOPEMIN [Suspect]
     Indication: DIARRHOEA
     Route: 048

REACTIONS (4)
  - BRAIN OEDEMA [None]
  - CONTRAINDICATION TO MEDICAL TREATMENT [None]
  - ENCEPHALOPATHY [None]
  - RENAL FAILURE [None]
